APPROVED DRUG PRODUCT: DESIPRAMINE HYDROCHLORIDE
Active Ingredient: DESIPRAMINE HYDROCHLORIDE
Strength: 150MG
Dosage Form/Route: TABLET;ORAL
Application: A205153 | Product #006
Applicant: ANI PHARMACEUTICALS INC
Approved: Oct 28, 2016 | RLD: No | RS: No | Type: DISCN